FAERS Safety Report 5670736-3 (Version None)
Quarter: 2008Q1

REPORT INFORMATION
  Report Type: 
  Country: None (occurrence: None)
  Receive Date: 20080318
  Receipt Date: 20080310
  Transmission Date: 20080703
  Serious: Yes (Hospitalization)
  Sender: FDA-Public Use
  Company Number: PHBS2008GT03143

PATIENT
  Age: 35 Year
  Sex: Male

DRUGS (5)
  1. FEMARA [Suspect]
     Dosage: 75 MG, ONCE/SINGLE
     Route: 048
     Dates: start: 20080308, end: 20080308
  2. LEXOTAN [Suspect]
     Dosage: 180 MG, ONCE/SINGLE
     Route: 048
     Dates: start: 20080308, end: 20080308
  3. MOTRIN [Suspect]
     Dosage: 6000 MG, ONCE/SINGLE
     Route: 048
     Dates: start: 20080308, end: 20080308
  4. FLUCONAZOLE [Suspect]
     Dosage: 1500 MG, ONCE/SINGLE
     Route: 048
     Dates: start: 20080308, end: 20080308
  5. ACECLOFENAC [Suspect]
     Dosage: 3000 MG, ONCE/SINGLE
     Route: 048
     Dates: start: 20080308, end: 20080308

REACTIONS (15)
  - ASPARTATE AMINOTRANSFERASE INCREASED [None]
  - ASPIRATION BRONCHIAL [None]
  - BLOOD ALBUMIN DECREASED [None]
  - BLOOD LACTATE DEHYDROGENASE INCREASED [None]
  - CONSCIOUSNESS FLUCTUATING [None]
  - ENDOTRACHEAL INTUBATION [None]
  - HAEMATOCRIT INCREASED [None]
  - HAEMOGLOBIN INCREASED [None]
  - INTENTIONAL OVERDOSE [None]
  - LYMPHOCYTE PERCENTAGE DECREASED [None]
  - MECHANICAL VENTILATION [None]
  - NEUTROPHIL PERCENTAGE INCREASED [None]
  - RESPIRATORY DEPRESSION [None]
  - SUICIDE ATTEMPT [None]
  - WHITE BLOOD CELL COUNT INCREASED [None]
